FAERS Safety Report 10233390 (Version 1)
Quarter: 2014Q2

REPORT INFORMATION
  Report Type: Spontaneous
  Country: FR (occurrence: FR)
  Receive Date: 20140612
  Receipt Date: 20140612
  Transmission Date: 20141212
  Serious: Yes (Other)
  Sender: FDA-Public Use
  Company Number: FR-MYLANLABS-2014S1013484

PATIENT
  Age: 54 Year
  Sex: Female

DRUGS (12)
  1. PACLITAXEL [Suspect]
     Route: 065
  2. TRASTUZUMAB [Suspect]
     Route: 065
  3. VINORELBINE [Suspect]
     Route: 065
  4. CAPECITABINE [Suspect]
     Route: 065
  5. GEMCITABINE [Suspect]
     Route: 065
  6. EPIRUBICIN [Suspect]
     Route: 065
  7. ETOPOSIDE [Suspect]
     Indication: METASTASES TO LIVER
     Route: 048
  8. ETOPOSIDE [Suspect]
     Indication: OFF LABEL USE
     Route: 048
  9. MELPHALAN [Suspect]
     Indication: METASTASES TO LIVER
     Route: 065
  10. MELPHALAN [Suspect]
     Indication: OFF LABEL USE
     Route: 065
  11. AFLIBERCEPT [Suspect]
     Dosage: 2 MG/KG EVERY 21 DAYS
     Route: 065
     Dates: start: 200512
  12. DOCETAXEL [Suspect]
     Dosage: 75 MG/M2 EVERY 21 DAYS
     Route: 065
     Dates: start: 200512

REACTIONS (2)
  - Thrombosis [Unknown]
  - Epistaxis [Unknown]
